FAERS Safety Report 19450114 (Version 1)
Quarter: 2021Q2

REPORT INFORMATION
  Report Type: Spontaneous
  Country: ES (occurrence: ES)
  Receive Date: 20210622
  Receipt Date: 20210622
  Transmission Date: 20210717
  Serious: Yes (Life-Threatening, Hospitalization, Other)
  Sender: FDA-Public Use
  Company Number: ES-LUPIN PHARMACEUTICALS INC.-2021-09984

PATIENT
  Age: 51 Year
  Sex: Male

DRUGS (1)
  1. LANTHANUM [Suspect]
     Active Substance: LANTHANUM
     Indication: HYPERPHOSPHATAEMIA
     Dosage: 1000 MILLIGRAM, TID
     Route: 065

REACTIONS (5)
  - Upper gastrointestinal haemorrhage [Unknown]
  - Anaemia [Unknown]
  - Loss of consciousness [Unknown]
  - Haemodynamic instability [Unknown]
  - Gastric disorder [Unknown]
